FAERS Safety Report 12501601 (Version 1)
Quarter: 2016Q2

REPORT INFORMATION
  Report Type: Spontaneous
  Country: US (occurrence: US)
  Receive Date: 20160627
  Receipt Date: 20160627
  Transmission Date: 20160815
  Serious: Yes (Life-Threatening, Hospitalization, Other)
  Sender: FDA-Public Use
  Company Number: US-SA-2016SA118395

PATIENT
  Age: 60 Year
  Sex: Female
  Weight: 77.6 kg

DRUGS (17)
  1. MICAFUNGIN [Concomitant]
     Active Substance: MICAFUNGIN
     Indication: PROPHYLAXIS
  2. MELPHALAN [Suspect]
     Active Substance: MELPHALAN
     Indication: BONE MARROW CONDITIONING REGIMEN
     Route: 042
     Dates: start: 20160606
  3. MS CONTIN [Concomitant]
     Active Substance: MORPHINE SULFATE
  4. ATIVAN [Concomitant]
     Active Substance: LORAZEPAM
  5. LEXAPRO [Concomitant]
     Active Substance: ESCITALOPRAM OXALATE
  6. CLOLAR [Suspect]
     Active Substance: CLOFARABINE
     Indication: BONE MARROW CONDITIONING REGIMEN
     Route: 042
     Dates: start: 20160601, end: 20160605
  7. MEROPENEM. [Concomitant]
     Active Substance: MEROPENEM
     Indication: ANTI-INFECTIVE THERAPY
  8. ACTIGALL [Concomitant]
     Active Substance: URSODIOL
  9. LEVOTHYROXINE. [Concomitant]
     Active Substance: LEVOTHYROXINE
  10. ACYCLOVIR. [Concomitant]
     Active Substance: ACYCLOVIR
     Indication: PROPHYLAXIS
  11. VANCOMYCIN [Concomitant]
     Active Substance: VANCOMYCIN
     Indication: ANTI-INFECTIVE THERAPY
     Route: 048
  12. FAMOTIDINE. [Concomitant]
     Active Substance: FAMOTIDINE
  13. TACROLIMUS. [Concomitant]
     Active Substance: TACROLIMUS
  14. IPRATROPIUM [Concomitant]
     Active Substance: IPRATROPIUM
  15. ALBUTEROL. [Concomitant]
     Active Substance: ALBUTEROL
  16. LYRICA [Concomitant]
     Active Substance: PREGABALIN
  17. SIROLIMUS. [Concomitant]
     Active Substance: SIROLIMUS

REACTIONS (22)
  - Septic shock [Not Recovered/Not Resolved]
  - Tachycardia [Not Recovered/Not Resolved]
  - Acute kidney injury [Unknown]
  - Palmar-plantar erythrodysaesthesia syndrome [Unknown]
  - Anxiety [Unknown]
  - Anaemia [Unknown]
  - Hypoxia [Unknown]
  - Blood bilirubin increased [Unknown]
  - Blood electrolytes abnormal [Unknown]
  - White blood cell count decreased [Unknown]
  - Pyrexia [Not Recovered/Not Resolved]
  - Febrile neutropenia [Unknown]
  - Agitation [Unknown]
  - Acute respiratory distress syndrome [Not Recovered/Not Resolved]
  - Dyspnoea [Not Recovered/Not Resolved]
  - Pleural effusion [Unknown]
  - Enterococcal infection [Unknown]
  - Neutrophil count decreased [Unknown]
  - Stomatitis [Unknown]
  - Fluid overload [Unknown]
  - Platelet count decreased [Unknown]
  - Hypotension [Unknown]

NARRATIVE: CASE EVENT DATE: 20160611
